FAERS Safety Report 13562213 (Version 2)
Quarter: 2017Q4

REPORT INFORMATION
  Report Type: Report from Study
  Country: None (occurrence: US)
  Receive Date: 20170519
  Receipt Date: 20171128
  Transmission Date: 20180320
  Serious: Yes (Other)
  Sender: FDA-Public Use
  Company Number: US-ABBVIE-17K-163-1978748-00

PATIENT
  Age: 68 Year
  Sex: Female

DRUGS (3)
  1. CYMBALTA [Concomitant]
     Active Substance: DULOXETINE HYDROCHLORIDE
     Indication: PRODUCT USED FOR UNKNOWN INDICATION
  2. HUMIRA [Suspect]
     Active Substance: ADALIMUMAB
     Indication: PSORIATIC ARTHROPATHY
     Route: 058
     Dates: start: 201006
  3. METHOTREXATE. [Suspect]
     Active Substance: METHOTREXATE
     Indication: PRODUCT USED FOR UNKNOWN INDICATION
     Route: 065

REACTIONS (18)
  - Mouth haemorrhage [Not Recovered/Not Resolved]
  - Tongue biting [Unknown]
  - Oropharyngeal dysplasia [Unknown]
  - Leukoplakia oral [Recovering/Resolving]
  - Burning mouth syndrome [Unknown]
  - Stomatitis [Not Recovered/Not Resolved]
  - Oral papule [Unknown]
  - Lichenification [Not Recovered/Not Resolved]
  - Precancerous mucosal lesion [Recovered/Resolved]
  - Glossodynia [Recovering/Resolving]
  - Anxiety [Unknown]
  - Gingival recession [Unknown]
  - Purpura [Not Recovered/Not Resolved]
  - Oral discomfort [Unknown]
  - Tongue coated [Unknown]
  - Oral fibroma [Unknown]
  - Nervousness [Unknown]
  - Dry mouth [Unknown]

NARRATIVE: CASE EVENT DATE: 2014
